FAERS Safety Report 20082597 (Version 1)
Quarter: 2021Q4

REPORT INFORMATION
  Report Type: Spontaneous
  Country: US (occurrence: None)
  Receive Date: 20211117
  Receipt Date: 20211117
  Transmission Date: 20220303
  Serious: Yes (Hospitalization)
  Sender: FDA-Public Use
  Company Number: None

PATIENT
  Age: 66 Year
  Sex: Female
  Weight: 90.2 kg

DRUGS (14)
  1. BARICITINIB [Suspect]
     Active Substance: BARICITINIB
     Indication: COVID-19
     Dosage: FREQUENCY : DAILY;?
     Route: 048
     Dates: start: 20211106, end: 20211108
  2. REMDESIVIR [Suspect]
     Active Substance: REMDESIVIR
     Indication: COVID-19
     Dosage: FREQUENCY : DAILY;?
     Route: 040
     Dates: start: 20211106, end: 20211108
  3. TYLENOL [Concomitant]
     Active Substance: ACETAMINOPHEN
     Dates: start: 20211107, end: 20211109
  4. ASPIRIN [Concomitant]
     Active Substance: ASPIRIN
     Dates: start: 20211106
  5. CEFTRIAXONE [Concomitant]
     Active Substance: CEFTRIAXONE
     Dates: start: 20211106, end: 20211107
  6. DEXAMETHASONE [Concomitant]
     Active Substance: DEXAMETHASONE
     Dates: start: 20211106, end: 20211115
  7. PRECEDEX [Concomitant]
     Active Substance: DEXMEDETOMIDINE HYDROCHLORIDE
     Dates: start: 20211106, end: 20211107
  8. ENOXAPARIN [Concomitant]
     Active Substance: ENOXAPARIN
     Dates: start: 20211106
  9. EZETIMIBE [Concomitant]
     Active Substance: EZETIMIBE
     Dates: end: 20211108
  10. FENOFIBRATE [Concomitant]
     Active Substance: FENOFIBRATE
     Dates: end: 20211108
  11. FUROSEMIDE [Concomitant]
     Active Substance: FUROSEMIDE
     Dates: start: 20211106
  12. guiafenesin [Concomitant]
     Dates: start: 20211107
  13. METOPROLOL [Concomitant]
     Active Substance: METOPROLOL
     Dates: start: 20211106
  14. VANCOMYCIN [Concomitant]
     Active Substance: VANCOMYCIN
     Dates: start: 20211106, end: 20211107

REACTIONS (1)
  - Liver function test increased [None]

NARRATIVE: CASE EVENT DATE: 20211108
